FAERS Safety Report 14284656 (Version 2)
Quarter: 2017Q4

REPORT INFORMATION
  Report Type: Spontaneous
  Country: TR (occurrence: TR)
  Receive Date: 20171214
  Receipt Date: 20171222
  Transmission Date: 20180321
  Serious: Yes (Life-Threatening, Other)
  Sender: FDA-Public Use
  Company Number: TR-ALKABELLO-2017AA004113

PATIENT
  Age: 34 Year
  Sex: Male

DRUGS (9)
  1. ZYRTEC [Concomitant]
     Active Substance: CETIRIZINE HYDROCHLORIDE
  2. XYZAL [Concomitant]
     Active Substance: LEVOCETIRIZINE DIHYDROCHLORIDE
  3. DESLORATADINE. [Concomitant]
     Active Substance: DESLORATADINE
  4. CLARITIN [Concomitant]
     Active Substance: LORATADINE
  5. CETIRIZINE [Concomitant]
     Active Substance: CETIRIZINE HYDROCHLORIDE
  6. CLARINASE [Concomitant]
     Active Substance: LORATADINE\PSEUDOEPHEDRINE SULFATE
  7. AERIUS [Concomitant]
     Active Substance: DESLORATADINE
  8. GRAZAX [Suspect]
     Active Substance: PHLEUM PRATENSE POLLEN
     Route: 065
     Dates: start: 20171025, end: 20171027
  9. MONTELUKAST [Concomitant]
     Active Substance: MONTELUKAST SODIUM

REACTIONS (7)
  - Ear pruritus [Recovered/Resolved]
  - Throat irritation [Recovered/Resolved]
  - Oropharyngeal pain [Recovered/Resolved]
  - Dyspnoea [Recovered/Resolved]
  - Gingival recession [Recovered/Resolved]
  - Choking [Recovered/Resolved]
  - Gingival pruritus [Recovered/Resolved]

NARRATIVE: CASE EVENT DATE: 20171025
